FAERS Safety Report 7302865-2 (Version None)
Quarter: 2011Q1

REPORT INFORMATION
  Report Type: 
  Country: None (occurrence: None)
  Receive Date: 20110218
  Receipt Date: 20110208
  Transmission Date: 20110831
  Serious: Yes (Hospitalization)
  Sender: FDA-Public Use
  Company Number: JP-AMGEN-JPNSP2011008054

PATIENT
  Age: 86 Year
  Sex: Female

DRUGS (4)
  1. PREDNISOLONE [Concomitant]
     Dosage: 2.5 MG, 1X/DAY
     Route: 048
     Dates: start: 20100301, end: 20110207
  2. ENBREL [Suspect]
     Indication: RHEUMATOID ARTHRITIS
     Dosage: 50 MG, ONCE EVERY TWO WEEKS
     Route: 058
     Dates: start: 20100929, end: 20110207
  3. RHEUMATREX [Concomitant]
     Indication: RHEUMATOID ARTHRITIS
     Dosage: 6 MG, WEEKLY
     Route: 048
     Dates: start: 20100301, end: 20110207
  4. RIMATIL [Concomitant]
     Dosage: 50 MG, 2X/DAY
     Route: 048
     Dates: start: 20100301, end: 20110207

REACTIONS (3)
  - INFLUENZA [None]
  - HYPOGLYCAEMIA [None]
  - NASOPHARYNGITIS [None]
